FAERS Safety Report 9510932 (Version 2)
Quarter: 2013Q3

REPORT INFORMATION
  Report Type: Report from Study
  Country: GB (occurrence: GB)
  Receive Date: 20130910
  Receipt Date: 20130910
  Transmission Date: 20140515
  Serious: Yes (Other)
  Sender: FDA-Public Use
  Company Number: GB-ROCHE-468287

PATIENT
  Sex: 0

DRUGS (4)
  1. CAPECITABINE [Suspect]
     Indication: RECTAL CANCER
     Dosage: A 3 WEEKLY REGIMEN OF CAPECITABINE (1000 MG/M2/BD); OR THE PATIENTS WHO WERE AGED 75 YEARS OR OLDER,
     Route: 048
  2. CAPECITABINE [Suspect]
     Indication: COLORECTAL CANCER METASTATIC
  3. OXALIPLATIN [Suspect]
     Indication: RECTAL CANCER
     Dosage: 130 MG/M2 ON DAY 1 OR THE PATIENTS WHO WERE AGED 75 YEARS OR OLDER, RECEIVED A REDUCED DOSE OF OXALI
     Route: 042
  4. OXALIPLATIN [Suspect]
     Indication: COLORECTAL CANCER METASTATIC

REACTIONS (3)
  - Troponin I increased [Recovered/Resolved]
  - Angina pectoris [Recovered/Resolved]
  - Electrocardiogram T wave abnormal [Recovered/Resolved]
